FAERS Safety Report 15803258 (Version 1)
Quarter: 2019Q1

REPORT INFORMATION
  Report Type: Spontaneous
  Country: US (occurrence: US)
  Receive Date: 20190108
  Receipt Date: 20190108
  Transmission Date: 20190417
  Serious: No
  Sender: FDA-Public Use
  Company Number: None

PATIENT

DRUGS (2)
  1. HYDROCHLOROTHIAZIDE. [Suspect]
     Active Substance: HYDROCHLOROTHIAZIDE
  2. VENALAFAXINE HCL [Suspect]
     Active Substance: VENLAFAXINE HYDROCHLORIDE

REACTIONS (4)
  - Wrong schedule [None]
  - Incorrect dose administered [None]
  - Transcription medication error [None]
  - Product dispensing error [None]

NARRATIVE: CASE EVENT DATE: 2018
